FAERS Safety Report 5419123-3 (Version None)
Quarter: 2007Q3

REPORT INFORMATION
  Report Type: 
  Country: None (occurrence: None)
  Receive Date: 20070820
  Receipt Date: 20070813
  Transmission Date: 20080115
  Serious: Yes (Hospitalization, Other)
  Sender: FDA-Public Use
  Company Number: PHRM2007FR02011

PATIENT
  Age: 76 Year
  Sex: Male

DRUGS (3)
  1. ZOMETA [Suspect]
     Indication: MULTIPLE MYELOMA
     Route: 042
     Dates: start: 20061031, end: 20070408
  2. ALKERAN [Suspect]
     Indication: MULTIPLE MYELOMA
     Route: 042
     Dates: start: 20061031, end: 20070408
  3. DEXAMETHASONE 0.5MG TAB [Suspect]
     Indication: MULTIPLE MYELOMA
     Route: 042
     Dates: start: 20061031, end: 20070408

REACTIONS (7)
  - DERMATITIS EXFOLIATIVE [None]
  - ECZEMA [None]
  - IMPETIGO [None]
  - PHOTOSENSITIVITY REACTION [None]
  - PIGMENTATION DISORDER [None]
  - PRURITUS [None]
  - STAPHYLOCOCCAL SEPSIS [None]
